FAERS Safety Report 5388632-8 (Version None)
Quarter: 2007Q3

REPORT INFORMATION
  Report Type: 
  Country: None (occurrence: None)
  Receive Date: 20070716
  Receipt Date: 20070711
  Transmission Date: 20080115
  Serious: Yes (Hospitalization)
  Sender: FDA-Public Use
  Company Number: NO-ROXANE LABORATORIES, INC-2007-BP-17134RO

PATIENT
  Age: 78 Year
  Sex: Male
  Weight: 90 kg

DRUGS (8)
  1. CLARITHROMYCIN [Suspect]
     Indication: BRONCHITIS
     Route: 048
  2. SIMVASTATIN [Suspect]
     Dosage: 80 MG/DAY
     Route: 048
  3. WARFARIN SODIUM [Suspect]
     Dosage: 30 MG/WEEK
  4. ASPIRIN [Suspect]
     Dosage: 75 MG DAILY
  5. ISOSORBIDE MONONITRATE [Suspect]
     Dosage: 30 MG DAILY
  6. ATENOLOL [Suspect]
     Dosage: 50 MG DAILY
  7. NITROGLYCERIN [Suspect]
     Indication: CHEST PAIN
     Dosage: AS NEEDED
  8. PHENOXYMETHYL PENICILLIN [Suspect]
     Indication: BRONCHITIS

REACTIONS (9)
  - ALANINE AMINOTRANSFERASE INCREASED [None]
  - ASPARTATE AMINOTRANSFERASE INCREASED [None]
  - BLOOD CREATINE PHOSPHOKINASE INCREASED [None]
  - CHROMATURIA [None]
  - DRUG INTERACTION [None]
  - INTERNATIONAL NORMALISED RATIO INCREASED [None]
  - MOTOR DYSFUNCTION [None]
  - RHABDOMYOLYSIS [None]
  - THERAPEUTIC PRODUCT INEFFECTIVE [None]
